FAERS Safety Report 6109459-5 (Version None)
Quarter: 2009Q1

REPORT INFORMATION
  Report Type: 
  Country: None (occurrence: None)
  Receive Date: 20090306
  Receipt Date: 20090306
  Transmission Date: 20090719
  Serious: Yes (Life-Threatening, Hospitalization)
  Sender: FDA-Public Use
  Company Number: None

PATIENT
  Age: 64 Year
  Sex: Male
  Weight: 65.7716 kg

DRUGS (1)
  1. FACTIVE [Suspect]
     Indication: INFLUENZA LIKE ILLNESS
     Dosage: 1 PILL A DAY 2 DAYS
     Dates: start: 20080728, end: 20080729

REACTIONS (7)
  - GAIT DISTURBANCE [None]
  - HEPATIC FUNCTION ABNORMAL [None]
  - IMPAIRED WORK ABILITY [None]
  - JOINT SWELLING [None]
  - MALAISE [None]
  - OCULAR ICTERUS [None]
  - YELLOW SKIN [None]
